FAERS Safety Report 18565273 (Version 8)
Quarter: 2021Q4

REPORT INFORMATION
  Report Type: Report from Study
  Country: IE (occurrence: IE)
  Receive Date: 20201201
  Receipt Date: 20211123
  Transmission Date: 20220303
  Serious: Yes (Other)
  Sender: FDA-Public Use
  Company Number: IE-SHIRE-IE201942400

PATIENT
  Age: 47 Year
  Sex: Female

DRUGS (52)
  1. PROPRANOLOL [Suspect]
     Active Substance: PROPRANOLOL HYDROCHLORIDE
     Indication: Product used for unknown indication
     Dosage: 80 MILLIGRAM, QD
     Route: 050
  2. REPLAGAL [Suspect]
     Active Substance: AGALSIDASE ALFA
     Indication: Fabry^s disease
     Dosage: 17.5 MILLIGRAM, 1X/2WKS
     Route: 042
     Dates: start: 20191216
  3. REPLAGAL [Suspect]
     Active Substance: AGALSIDASE ALFA
     Dosage: 17.5 MILLIGRAM, 1X/2WKS
     Route: 042
     Dates: start: 20200224
  4. REPLAGAL [Suspect]
     Active Substance: AGALSIDASE ALFA
     Dosage: 17.5 MILLIGRAM, 1X/2WKS
     Route: 042
     Dates: start: 20150428
  5. REPLAGAL [Suspect]
     Active Substance: AGALSIDASE ALFA
     Dosage: 17.5 MILLIGRAM, 1X/2WKS
     Route: 042
     Dates: start: 20200309
  6. REPLAGAL [Suspect]
     Active Substance: AGALSIDASE ALFA
     Dosage: UNK UNK, 1X/2WKS
     Route: 042
     Dates: start: 20200211
  7. REPLAGAL [Suspect]
     Active Substance: AGALSIDASE ALFA
     Dosage: 17.5 MILLIGRAM, 1X/2WKS
     Route: 042
     Dates: start: 20200505
  8. REPLAGAL [Suspect]
     Active Substance: AGALSIDASE ALFA
     Dosage: 17.5 MILLIGRAM, 1X/2WKS
     Route: 042
     Dates: start: 20191231
  9. REPLAGAL [Suspect]
     Active Substance: AGALSIDASE ALFA
     Dosage: 17.5 MILLIGRAM, 1X/2WKS
     Route: 042
     Dates: start: 20191231
  10. REPLAGAL [Suspect]
     Active Substance: AGALSIDASE ALFA
     Dosage: 17.5 MILLIGRAM, 1X/2WKS
     Route: 042
     Dates: start: 20200323
  11. REPLAGAL [Suspect]
     Active Substance: AGALSIDASE ALFA
     Dosage: UNK
     Route: 042
     Dates: start: 20190813
  12. REPLAGAL [Suspect]
     Active Substance: AGALSIDASE ALFA
     Dosage: 17.5 MILLIGRAM, 1X/2WKS
     Route: 042
     Dates: start: 20150428
  13. REPLAGAL [Suspect]
     Active Substance: AGALSIDASE ALFA
     Dosage: UNK
     Route: 065
     Dates: start: 20191119
  14. REPLAGAL [Suspect]
     Active Substance: AGALSIDASE ALFA
     Dosage: UNK
     Route: 065
     Dates: start: 20191203
  15. REPLAGAL [Suspect]
     Active Substance: AGALSIDASE ALFA
     Dosage: 17.5 MILLIGRAM, 1X/2WKS
     Route: 042
     Dates: start: 20150428
  16. REPLAGAL [Suspect]
     Active Substance: AGALSIDASE ALFA
     Dosage: 17.5 MILLIGRAM, 1X/2WKS
     Route: 042
     Dates: start: 20200824
  17. REPLAGAL [Suspect]
     Active Substance: AGALSIDASE ALFA
     Dosage: UNK
     Route: 042
     Dates: start: 20191008
  18. REPLAGAL [Suspect]
     Active Substance: AGALSIDASE ALFA
     Dosage: 17.5 MILLIGRAM, 1X/2WKS
     Route: 042
     Dates: start: 20200406
  19. REPLAGAL [Suspect]
     Active Substance: AGALSIDASE ALFA
     Dosage: UNK
     Route: 065
     Dates: start: 20130821
  20. REPLAGAL [Suspect]
     Active Substance: AGALSIDASE ALFA
     Dosage: 17.5 MILLIGRAM, 1X/2WKS
     Route: 042
     Dates: start: 20200727
  21. REPLAGAL [Suspect]
     Active Substance: AGALSIDASE ALFA
     Dosage: 17.5 MILLIGRAM, 1X/2WKS
     Route: 042
     Dates: start: 20200810
  22. REPLAGAL [Suspect]
     Active Substance: AGALSIDASE ALFA
     Dosage: 17.5 MILLIGRAM, 1X/2WKS
     Route: 042
     Dates: start: 20150428
  23. REPLAGAL [Suspect]
     Active Substance: AGALSIDASE ALFA
     Dosage: 17.5 MILLIGRAM, Q2W
     Route: 042
     Dates: start: 20150428
  24. REPLAGAL [Suspect]
     Active Substance: AGALSIDASE ALFA
     Dosage: 17.5 MILLIGRAM, Q2W
     Route: 042
     Dates: start: 20150428
  25. REPLAGAL [Suspect]
     Active Substance: AGALSIDASE ALFA
     Dosage: UNK
     Route: 042
     Dates: start: 20200211
  26. COVID-19 VACCINE NOS [Suspect]
     Active Substance: COVID-19 VACCINE NOS
     Indication: Product used for unknown indication
     Dosage: UNK
     Route: 065
  27. PRINOPRIL                          /00894001/ [Concomitant]
     Indication: Product used for unknown indication
     Dosage: 10 MILLIGRAM
     Route: 065
  28. PRINOPRIL                          /00894001/ [Concomitant]
     Dosage: 10 MILLIGRAM
     Route: 050
  29. CEFUROXIME [Concomitant]
     Active Substance: CEFUROXIME
     Indication: Product used for unknown indication
     Dosage: 1000 MG, QD (500 MILLIGRAM, 2X/DAY:BID)
     Route: 050
  30. NARATRIPTAN [Concomitant]
     Active Substance: NARATRIPTAN HYDROCHLORIDE
     Indication: Product used for unknown indication
     Dosage: 2.5 MILLIGRAM, AS REQUIRED
     Route: 050
  31. NARATRIPTAN [Concomitant]
     Active Substance: NARATRIPTAN HYDROCHLORIDE
     Dosage: 2.5 MILLIGRAM
     Route: 065
  32. MAGNESIUM OXIDE [Concomitant]
     Active Substance: MAGNESIUM OXIDE
     Indication: Product used for unknown indication
     Dosage: 750 MG, QD (250 MILLIGRAM, 3X/DAY:TID)
     Route: 050
  33. ARTHROTEC [Concomitant]
     Active Substance: DICLOFENAC SODIUM\MISOPROSTOL
     Indication: Product used for unknown indication
     Dosage: 150 MG, QD (75 MILLIGRAM, 2X/DAY:BID)
     Route: 050
  34. TEGRETOL [Concomitant]
     Active Substance: CARBAMAZEPINE
     Indication: Product used for unknown indication
     Dosage: 400 MILLIGRAM
     Route: 050
  35. TEGRETOL [Concomitant]
     Active Substance: CARBAMAZEPINE
     Dosage: 300 MILLIGRAM
     Route: 050
  36. FLUNARIZINE [Concomitant]
     Active Substance: FLUNARIZINE
     Indication: Product used for unknown indication
     Dosage: 5 MILLIGRAM, 1X/DAY:QD
     Route: 050
  37. DYMISTA [Concomitant]
     Active Substance: AZELASTINE HYDROCHLORIDE\FLUTICASONE PROPIONATE
     Indication: Product used for unknown indication
     Dosage: UNK
     Route: 065
  38. DIFLUCAN [Concomitant]
     Active Substance: FLUCONAZOLE
     Indication: Product used for unknown indication
     Dosage: 50 MILLIGRAM, 1X/DAY:QD
     Route: 050
  39. IRON [Concomitant]
     Active Substance: IRON
     Indication: Product used for unknown indication
     Dosage: 17 MILLIGRAM, 1X/DAY:QD
     Route: 050
  40. ACETAMINOPHEN [Concomitant]
     Active Substance: ACETAMINOPHEN
     Indication: Product used for unknown indication
     Dosage: 1 GRAM, PRN (1 GRAM, AS REQUIRED)
     Route: 065
  41. ACETAMINOPHEN [Concomitant]
     Active Substance: ACETAMINOPHEN
     Dosage: 1 GRAM
     Route: 065
  42. NUPRIN                             /00109201/ [Concomitant]
     Indication: Product used for unknown indication
     Dosage: 75 MILLIGRAM
     Route: 050
  43. LIPITOR [Concomitant]
     Active Substance: ATORVASTATIN CALCIUM
     Indication: Product used for unknown indication
     Dosage: 20 MILLIGRAM, PM (20 MILLIGRAM; NIGHT)
     Route: 065
  44. PREDNISOLONE [Concomitant]
     Active Substance: PREDNISOLONE
     Indication: Product used for unknown indication
     Dosage: 30 MILLIGRAM, 1X/DAY:QD
     Route: 050
  45. RIBOFLAVIN [Concomitant]
     Active Substance: RIBOFLAVIN
     Indication: Product used for unknown indication
     Dosage: 200 MG, QD (100 MILLIGRAM, 2X/DAY:BID)
     Route: 050
  46. TRAMADOL [Concomitant]
     Active Substance: TRAMADOL
     Indication: Product used for unknown indication
     Dosage: 300 MG, QD (100 MILLIGRAM, 3X/DAY:TID)
     Route: 050
  47. AUGMENTINE                         /00852501/ [Concomitant]
     Indication: Dizziness
     Dosage: 1000 MG, QD (500 MILLIGRAM, 2X/DAY:BID)
     Route: 050
  48. AUGMENTINE                         /00852501/ [Concomitant]
     Indication: Cough
  49. AUGMENTINE                         /00852501/ [Concomitant]
     Indication: Nasal congestion
  50. AUGMENTINE                         /00852501/ [Concomitant]
     Indication: Syncope
  51. AMITRIPTYLINE [Concomitant]
     Active Substance: AMITRIPTYLINE
     Indication: Rhinitis
     Dosage: 50 MILLIGRAM, QD
     Route: 065
  52. AMITRIPTYLINE [Concomitant]
     Active Substance: AMITRIPTYLINE
     Dosage: 50 MILLIGRAM, QD
     Route: 050

REACTIONS (30)
  - Syncope [Recovering/Resolving]
  - Peripheral coldness [Not Recovered/Not Resolved]
  - Migraine [Not Recovered/Not Resolved]
  - Somnolence [Not Recovered/Not Resolved]
  - Neuralgia [Not Recovered/Not Resolved]
  - Hypertension [Not Recovered/Not Resolved]
  - Myalgia [Not Recovered/Not Resolved]
  - Nasal congestion [Recovering/Resolving]
  - Rhinitis [Recovered/Resolved]
  - Flank pain [Recovered/Resolved]
  - Influenza like illness [Recovering/Resolving]
  - Blood pressure diastolic increased [Recovering/Resolving]
  - Asthenia [Not Recovered/Not Resolved]
  - Condition aggravated [Not Recovered/Not Resolved]
  - Fatigue [Not Recovered/Not Resolved]
  - Cough [Recovering/Resolving]
  - Contusion [Not Recovered/Not Resolved]
  - Pain [Not Recovered/Not Resolved]
  - Hypoaesthesia [Not Recovered/Not Resolved]
  - Dental discomfort [Unknown]
  - Increased tendency to bruise [Unknown]
  - Ill-defined disorder [Not Recovered/Not Resolved]
  - Blood pressure increased [Not Recovered/Not Resolved]
  - Nerve block [Not Recovered/Not Resolved]
  - Heart rate decreased [Not Recovered/Not Resolved]
  - Dizziness [Recovering/Resolving]
  - Headache [Not Recovered/Not Resolved]
  - Nausea [Recovered/Resolved]
  - Paraesthesia [Not Recovered/Not Resolved]
  - Diarrhoea [Recovered/Resolved]

NARRATIVE: CASE EVENT DATE: 20190501
